FAERS Safety Report 7849560-9 (Version None)
Quarter: 2011Q4

REPORT INFORMATION
  Report Type: 
  Country: None (occurrence: None)
  Receive Date: 20111026
  Receipt Date: 20111017
  Transmission Date: 20120403
  Serious: Yes (Hospitalization)
  Sender: FDA-Public Use
  Company Number: US-JNJFOC-20111008769

PATIENT
  Sex: Female
  Weight: 104.33 kg

DRUGS (4)
  1. DURAGESIC-100 [Suspect]
     Indication: PAIN IN EXTREMITY
     Route: 062
     Dates: start: 20100101
  2. DURAGESIC-100 [Suspect]
     Route: 062
     Dates: start: 20100101
  3. DURAGESIC-100 [Suspect]
     Route: 062
     Dates: start: 20100201, end: 20100101
  4. DURAGESIC-100 [Suspect]
     Indication: BACK PAIN
     Route: 062
     Dates: start: 20100201, end: 20100101

REACTIONS (6)
  - PANCREATITIS [None]
  - PANCREATIC PSEUDOCYST [None]
  - POST PROCEDURAL INFECTION [None]
  - PRODUCT QUALITY ISSUE [None]
  - CHOLECYSTECTOMY [None]
  - DRUG ADMINISTERED AT INAPPROPRIATE SITE [None]
